FAERS Safety Report 8200767-0 (Version None)
Quarter: 2012Q1

REPORT INFORMATION
  Report Type: 
  Country: None (occurrence: None)
  Receive Date: 20120307
  Receipt Date: 20120223
  Transmission Date: 20120608
  Serious: Yes (Other)
  Sender: FDA-Public Use
  Company Number: 216888

PATIENT
  Age: 49 Year
  Sex: Male

DRUGS (4)
  1. DAIVOBET OINTMENT (DAIVOBET /01643401/) (OINTMENT) [Suspect]
     Indication: PSORIASIS
     Dosage: TOPICAL
     Route: 061
  2. DIPROSALIC (BETADERMIC) (OINTMENT) [Concomitant]
  3. DOUBLEBASE (HYDROMOL /00906601/) (GEL) [Concomitant]
  4. METFORMIN HCL [Concomitant]

REACTIONS (11)
  - CUSHING'S SYNDROME [None]
  - OVERDOSE [None]
  - DIABETES MELLITUS [None]
  - MYOPATHY [None]
  - CONDITION AGGRAVATED [None]
  - SKIN ULCER [None]
  - TACHYCARDIA [None]
  - PSORIASIS [None]
  - INCORRECT DRUG ADMINISTRATION DURATION [None]
  - ADRENOCORTICAL INSUFFICIENCY ACUTE [None]
  - ARTHRALGIA [None]
